FAERS Safety Report 20644442 (Version 1)
Quarter: 2022Q1

REPORT INFORMATION
  Report Type: Spontaneous
  Country: US (occurrence: US)
  Receive Date: 20220328
  Receipt Date: 20220328
  Transmission Date: 20220423
  Serious: No
  Sender: FDA-Public Use
  Company Number: US-Cardinal Health 414-CAHLYMPH-AE-21-21

PATIENT
  Sex: Female

DRUGS (2)
  1. ETHYL CHLORIDE [Concomitant]
     Active Substance: ETHYL CHLORIDE
     Dates: start: 20210427, end: 20210427
  2. LYMPHOSEEK [Suspect]
     Active Substance: TECHNETIUM TC-99M TILMANOCEPT
     Indication: Lymphatic mapping
     Route: 023
     Dates: start: 20210427, end: 20210427

REACTIONS (4)
  - Urticaria [Recovered/Resolved]
  - Off label use [Recovered/Resolved]
  - Product preparation error [Recovered/Resolved]
  - Overdose [Recovered/Resolved]

NARRATIVE: CASE EVENT DATE: 20210427
